FAERS Safety Report 7247258-1 (Version None)
Quarter: 2011Q1

REPORT INFORMATION
  Report Type: 
  Country: None (occurrence: None)
  Receive Date: 20110127
  Receipt Date: 20110121
  Transmission Date: 20110831
  Serious: Yes (Hospitalization)
  Sender: FDA-Public Use
  Company Number: A0794872A

PATIENT
  Age: 67 Year
  Sex: Male
  Weight: 116.4 kg

DRUGS (1)
  1. AVANDIA [Suspect]
     Dosage: 4MG TWICE PER DAY
     Route: 048
     Dates: start: 20060501, end: 20071108

REACTIONS (3)
  - VISUAL IMPAIRMENT [None]
  - HYPERTENSION [None]
  - CEREBROVASCULAR ACCIDENT [None]
